FAERS Safety Report 8054717-0 (Version None)
Quarter: 2012Q1

REPORT INFORMATION
  Report Type: 
  Country: None (occurrence: None)
  Receive Date: 20120119
  Receipt Date: 20120118
  Transmission Date: 20120608
  Serious: No
  Sender: FDA-Public Use
  Company Number: US-PFIZER INC-2012014670

PATIENT
  Sex: Female
  Weight: 71.202 kg

DRUGS (2)
  1. CHANTIX [Suspect]
     Indication: SMOKING CESSATION THERAPY
     Dosage: 0.5 MG, 1X/DAY
     Route: 048
     Dates: start: 20110101
  2. CHANTIX [Suspect]
     Dosage: UNK
     Route: 048

REACTIONS (6)
  - NIGHTMARE [None]
  - FEELING JITTERY [None]
  - DRUG INEFFECTIVE [None]
  - ABNORMAL DREAMS [None]
  - TREMOR [None]
  - HUNGER [None]
